FAERS Safety Report 7013674-6 (Version None)
Quarter: 2010Q3

REPORT INFORMATION
  Report Type: 
  Country: None (occurrence: None)
  Receive Date: 20100924
  Receipt Date: 20100623
  Transmission Date: 20110219
  Serious: Yes (Other)
  Sender: FDA-Public Use
  Company Number: PHHY2010JP39194

PATIENT
  Age: 60 Year
  Sex: Male

DRUGS (2)
  1. FEMARA [Suspect]
     Indication: BREAST CANCER
     Route: 048
  2. BACCIDAL [Concomitant]
     Indication: PROSTATITIS
     Dosage: 300 MG, UNK
     Route: 048
     Dates: start: 20100601

REACTIONS (3)
  - LIVER DISORDER [None]
  - PROSTATITIS [None]
  - SURGERY [None]
